FAERS Safety Report 13552856 (Version 1)
Quarter: 2017Q2

REPORT INFORMATION
  Report Type: Spontaneous
  Country: US (occurrence: US)
  Receive Date: 20170516
  Receipt Date: 20170516
  Transmission Date: 20170830
  Serious: Yes (Other)
  Sender: FDA-Public Use
  Company Number: None

PATIENT
  Age: 70 Year
  Sex: Male

DRUGS (1)
  1. SUTENT [Suspect]
     Active Substance: SUNITINIB MALATE
     Indication: RENAL CANCER
     Route: 048
     Dates: start: 20170404

REACTIONS (5)
  - Hypersomnia [None]
  - Blood test abnormal [None]
  - Fatigue [None]
  - Platelet count decreased [None]
  - Epistaxis [None]

NARRATIVE: CASE EVENT DATE: 20170425
